FAERS Safety Report 7969554-2 (Version None)
Quarter: 2011Q4

REPORT INFORMATION
  Report Type: 
  Country: None (occurrence: None)
  Receive Date: 20111212
  Receipt Date: 20111206
  Transmission Date: 20120403
  Serious: No
  Sender: FDA-Public Use
  Company Number: US-PFIZER INC-2011298733

PATIENT
  Sex: Female
  Weight: 64.3 kg

DRUGS (3)
  1. PREMPRO [Suspect]
     Indication: HOT FLUSH
  2. LEVOXYL [Concomitant]
     Indication: THYROID DISORDER
     Dosage: 75 UG, DAILY
     Dates: start: 19910101
  3. PREMPRO [Suspect]
     Indication: BONE DISORDER
     Dosage: 0.5 MG, DAILY
     Dates: start: 19860101, end: 20111204

REACTIONS (1)
  - ALOPECIA [None]
